FAERS Safety Report 6643142-2 (Version None)
Quarter: 2010Q1

REPORT INFORMATION
  Report Type: 
  Country: None (occurrence: None)
  Receive Date: 20100319
  Receipt Date: 20100309
  Transmission Date: 20100710
  Serious: Yes (Other)
  Sender: FDA-Public Use
  Company Number: PHHY2010DE05330

PATIENT
  Sex: Female

DRUGS (5)
  1. RASILEZ [Suspect]
     Dosage: 150 MG, BID
     Route: 048
     Dates: start: 20090101, end: 20100101
  2. RASILEZ [Suspect]
     Dosage: 300 MG PER DAY
     Route: 048
     Dates: start: 20100101
  3. RASILEZ HCT [Suspect]
     Dosage: 1 DF PER DAY
     Route: 048
     Dates: start: 20100101, end: 20100101
  4. IRBESARTAN [Concomitant]
     Dosage: AS NEEDED ONE SINGLE DOSE
     Dates: start: 20090101
  5. CONCOR COR [Concomitant]
     Route: 065

REACTIONS (9)
  - ATRIAL FIBRILLATION [None]
  - BLOOD PRESSURE INADEQUATELY CONTROLLED [None]
  - CONSTIPATION [None]
  - DRUG INEFFECTIVE [None]
  - ERYTHEMA [None]
  - INTESTINAL MASS [None]
  - PAIN IN EXTREMITY [None]
  - PRURITUS [None]
  - RASH [None]
